FAERS Safety Report 14254589 (Version 3)
Quarter: 2018Q1

REPORT INFORMATION
  Report Type: Spontaneous
  Country: US (occurrence: US)
  Receive Date: 20171206
  Receipt Date: 20180110
  Transmission Date: 20180508
  Serious: No
  Sender: FDA-Public Use
  Company Number: US-PFIZER INC-2017522766

PATIENT
  Age: 93 Year
  Sex: Female
  Weight: 68.4 kg

DRUGS (3)
  1. ADVIL [Suspect]
     Active Substance: IBUPROFEN
     Indication: PAIN
     Dosage: 200 MG, EVERY 8 HOURS NO MORE THAN 6 A DAY
     Route: 048
     Dates: start: 20171202, end: 20171203
  2. CLONAZEPAM. [Suspect]
     Active Substance: CLONAZEPAM
     Dosage: 1 DF, 2X/DAY DAILY
  3. ALBUTEROL. [Suspect]
     Active Substance: ALBUTEROL
     Dosage: 3 MG, 2X/DAY

REACTIONS (1)
  - Ear disorder [Unknown]

NARRATIVE: CASE EVENT DATE: 20171203
